FAERS Safety Report 8990829 (Version 4)
Quarter: 2013Q2

REPORT INFORMATION
  Report Type: Spontaneous
  Country: JP (occurrence: JP)
  Receive Date: 20121231
  Receipt Date: 20130418
  Transmission Date: 20140414
  Serious: Yes (Hospitalization, Other)
  Sender: FDA-Public Use
  Company Number: PHHY2012JP120815

PATIENT
  Age: 87 Year
  Sex: Female
  Weight: 40 kg

DRUGS (8)
  1. DIOVAN [Suspect]
     Indication: HYPERTENSION
     Dosage: 80 MG, DAILY
     Route: 048
     Dates: end: 20121221
  2. VESICARE [Concomitant]
     Indication: HYPERTONIC BLADDER
     Dosage: 5 MG, UNK
     Route: 048
  3. PREDONINE [Concomitant]
     Indication: URTICARIA
     Dosage: 10 MG, UNK
     Route: 048
  4. CONIEL [Concomitant]
     Indication: HYPERTENSION
     Dosage: 8 MG, UNK
     Route: 048
  5. NEOPHYLLIN [Concomitant]
     Dosage: 300 MG, UNK
     Route: 048
  6. ARICEPT [Concomitant]
     Indication: DEMENTIA
     Dosage: 5 MG, UNK
     Route: 048
  7. SENNOSIDE [Concomitant]
     Indication: CONSTIPATION
     Dosage: UNK UKN, UNK
  8. SHAKUYAKUKANZOTO [Concomitant]
     Dosage: UNK UKN, UNK
     Route: 048
     Dates: start: 20121221

REACTIONS (11)
  - Stevens-Johnson syndrome [Recovered/Resolved]
  - Skin erosion [Recovering/Resolving]
  - Erythema [Recovering/Resolving]
  - Pyrexia [Recovering/Resolving]
  - Erythema of eyelid [Recovered/Resolved]
  - Eye discharge [Unknown]
  - Cheilitis [Unknown]
  - Oral mucosal erythema [Unknown]
  - Rash maculo-papular [Unknown]
  - Lip erosion [Recovering/Resolving]
  - Enanthema [Recovering/Resolving]
